FAERS Safety Report 16218552 (Version 2)
Quarter: 2019Q3

REPORT INFORMATION
  Report Type: Report from Study
  Country: US (occurrence: US)
  Receive Date: 20190419
  Receipt Date: 20190902
  Transmission Date: 20191004
  Serious: No
  Sender: FDA-Public Use
  Company Number: PHEH2019US016259

PATIENT
  Age: 53 Year
  Sex: Female

DRUGS (1)
  1. COSENTYX [Suspect]
     Active Substance: SECUKINUMAB
     Indication: PSORIASIS
     Dosage: 300 MG, Q4W (2 PENS)
     Route: 058

REACTIONS (3)
  - Therapeutic product effect incomplete [Unknown]
  - Sinusitis [Unknown]
  - Psoriasis [Unknown]
